FAERS Safety Report 9640104 (Version 1)
Quarter: 2013Q4

REPORT INFORMATION
  Report Type: Spontaneous
  Country: US (occurrence: None)
  Receive Date: 20131022
  Receipt Date: 20131022
  Transmission Date: 20140711
  Serious: Yes (Hospitalization)
  Sender: FDA-Public Use
  Company Number: None

PATIENT
  Age: 67 Year
  Sex: Male
  Weight: 84.8 kg

DRUGS (2)
  1. ASPIRIN [Suspect]
     Indication: SURGERY
     Dosage: 81 MG  EVERY DAY  PO
     Route: 048
     Dates: start: 20130331
  2. MELOXICAM [Suspect]
     Indication: PAIN
     Dosage: 15 MG  PRN  PO
     Route: 048
     Dates: start: 20130331

REACTIONS (3)
  - Blood pressure decreased [None]
  - Gastric haemorrhage [None]
  - Haemorrhoids [None]
